FAERS Safety Report 6354232-6 (Version None)
Quarter: 2009Q3

REPORT INFORMATION
  Report Type: 
  Country: None (occurrence: None)
  Receive Date: 20090914
  Receipt Date: 20090902
  Transmission Date: 20100115
  Serious: Yes (Other)
  Sender: FDA-Public Use
  Company Number: PHHY2009JP21654

PATIENT
  Sex: Male
  Weight: 55 kg

DRUGS (6)
  1. ICL670A ICL+DISTAB [Suspect]
     Indication: MULTIPLE MYELOMA
     Dosage: 1500 MG, QD
     Route: 048
     Dates: start: 20080920, end: 20081004
  2. ICL670A ICL+DISTAB [Suspect]
     Indication: IRON OVERLOAD
     Dosage: 1000 MG, QD
     Route: 048
     Dates: start: 20081005, end: 20081018
  3. DIGOXIN [Concomitant]
     Dosage: 0.125 MG, UNK
     Route: 048
     Dates: start: 20080920, end: 20090307
  4. BONALON [Concomitant]
     Dosage: 35 MG, UNK
     Route: 048
     Dates: start: 20080920, end: 20090307
  5. PLAVIX [Concomitant]
     Dosage: 25 MG, UNK
     Route: 048
     Dates: start: 20080920, end: 20090307
  6. RED BLOOD CELLS [Concomitant]
     Dosage: 2 U, BIW
     Dates: start: 20080920, end: 20081004

REACTIONS (4)
  - DECREASED APPETITE [None]
  - NAUSEA [None]
  - VOMITING [None]
  - WEIGHT DECREASED [None]
